FAERS Safety Report 4761034-0 (Version None)
Quarter: 2005Q3

REPORT INFORMATION
  Report Type: 
  Country: None (occurrence: None)
  Receive Date: 20050901
  Receipt Date: 20050817
  Transmission Date: 20060218
  Serious: Yes (Other)
  Sender: FDA-Public Use
  Company Number: 2005BI009615

PATIENT
  Age: 31 Year
  Sex: Female

DRUGS (12)
  1. AVONEX [Suspect]
     Indication: MULTIPLE SCLEROSIS
     Dosage: 30 UG; QW; IM
     Route: 030
     Dates: start: 19990201, end: 20000207
  2. MOTRIN [Concomitant]
  3. EXCEDRIN [Concomitant]
  4. PROZAC [Concomitant]
  5. SYMMETRIL [Concomitant]
  6. BACLOFEN [Concomitant]
  7. LACTULOSE [Concomitant]
  8. DAN MIST [Concomitant]
  9. EX-LAX [Concomitant]
  10. SENOKOT [Concomitant]
  11. CITRINEL [Concomitant]
  12. PRENATAL VITAMINS [Concomitant]

REACTIONS (4)
  - ABORTION MISSED [None]
  - DRUG EXPOSURE DURING PREGNANCY [None]
  - PREGNANCY [None]
  - STILLBIRTH [None]
